FAERS Safety Report 8130991-7 (Version None)
Quarter: 2012Q1

REPORT INFORMATION
  Report Type: 
  Country: None (occurrence: None)
  Receive Date: 20120208
  Receipt Date: 20120208
  Transmission Date: 20120608
  Serious: Yes (Hospitalization)
  Sender: FDA-Public Use
  Company Number: None

PATIENT
  Age: 68 Year
  Sex: Female

DRUGS (1)
  1. METHOTREXATE [Suspect]
     Dosage: TAKE 7 TABLETS ONCE WEEKLY
     Dates: start: 20111026

REACTIONS (4)
  - CYST [None]
  - PAIN [None]
  - HEPATIC STEATOSIS [None]
  - HEPATOMEGALY [None]
